FAERS Safety Report 5916091-2 (Version None)
Quarter: 2008Q4

REPORT INFORMATION
  Report Type: 
  Country: None (occurrence: None)
  Receive Date: 20081013
  Receipt Date: 20081001
  Transmission Date: 20090506
  Serious: Yes (Other)
  Sender: FDA-Public Use
  Company Number: US-CELGENEUS-163-20785-08100399

PATIENT

DRUGS (6)
  1. THALOMID [Suspect]
     Indication: SARCOMA
     Route: 048
     Dates: start: 20070123
  2. MESNA [Suspect]
     Indication: SARCOMA
     Route: 051
     Dates: start: 20070123
  3. DOXORUBICIN HCL [Suspect]
     Indication: SARCOMA
     Route: 051
     Dates: start: 20070123
  4. IFOSFAMIDE [Suspect]
     Indication: SARCOMA
     Route: 051
     Dates: start: 20070123
  5. DACARBAZINE [Suspect]
     Indication: SARCOMA
     Route: 051
     Dates: start: 20070123
  6. NEUPOGEN [Concomitant]
     Route: 058
     Dates: start: 20070123

REACTIONS (3)
  - HYPOPHOSPHATAEMIA [None]
  - LYMPHOPENIA [None]
  - THROMBOSIS [None]
